FAERS Safety Report 7221630-8 (Version None)
Quarter: 2011Q1

REPORT INFORMATION
  Report Type: 
  Country: None (occurrence: None)
  Receive Date: 20110112
  Receipt Date: 20110110
  Transmission Date: 20110831
  Serious: Yes (Other)
  Sender: FDA-Public Use
  Company Number: BR-ROCHE-715203

PATIENT
  Sex: Female
  Weight: 57 kg

DRUGS (15)
  1. FINASTERIDE [Concomitant]
  2. TOCILIZUMAB [Suspect]
     Route: 042
     Dates: start: 20101025, end: 20101025
  3. TOCILIZUMAB [Suspect]
     Indication: RHEUMATOID ARTHRITIS
     Dosage: FORM INFUSION
     Route: 042
     Dates: start: 20100927, end: 20100927
  4. TOCILIZUMAB [Suspect]
     Route: 042
     Dates: start: 20101222, end: 20101222
  5. MELOXICAM [Concomitant]
  6. CALCORT [Concomitant]
  7. RITUXIMAB [Suspect]
     Indication: RHEUMATOID ARTHRITIS
     Route: 042
     Dates: start: 20080101, end: 20080101
  8. ENBREL [Suspect]
     Dosage: RESTARTED
     Route: 065
  9. ARAVA [Concomitant]
  10. TOCILIZUMAB [Suspect]
     Route: 042
     Dates: start: 20101122, end: 20101122
  11. ENBREL [Suspect]
     Route: 065
     Dates: start: 20000101
  12. CALCORT [Concomitant]
  13. HYDROCHLOROTHIAZIDE [Concomitant]
     Dates: start: 20000101
  14. CHLOROQUINE [Concomitant]
  15. TIBOLONE [Concomitant]

REACTIONS (5)
  - ARTHROPATHY [None]
  - VIRAL INFECTION [None]
  - ARTHRITIS [None]
  - THERAPEUTIC RESPONSE DECREASED [None]
  - DRUG INEFFECTIVE [None]
